FAERS Safety Report 6162462-1 (Version None)
Quarter: 2009Q2

REPORT INFORMATION
  Report Type: 
  Country: None (occurrence: None)
  Receive Date: 20090421
  Receipt Date: 20090415
  Transmission Date: 20091009
  Serious: Yes (Hospitalization, Other)
  Sender: FDA-Public Use
  Company Number: PHHY2009IL14395

PATIENT
  Age: 45 Year

DRUGS (3)
  1. CYCLOSPORINE [Suspect]
     Indication: LIVER TRANSPLANT
  2. MYCOPHENOLIC ACID [Suspect]
     Indication: LIVER TRANSPLANT
  3. STEROIDS NOS [Suspect]

REACTIONS (8)
  - BILIARY ANASTOMOSIS COMPLICATION [None]
  - HEPATIC ENCEPHALOPATHY [None]
  - HEPATIC FAILURE [None]
  - LIVER TRANSPLANT [None]
  - LIVER TRANSPLANT REJECTION [None]
  - PORTAL VEIN STENOSIS [None]
  - PORTAL VEIN THROMBOSIS [None]
  - STENT PLACEMENT [None]
